FAERS Safety Report 7341766-0 (Version None)
Quarter: 2011Q1

REPORT INFORMATION
  Report Type: 
  Country: None (occurrence: None)
  Receive Date: 20110309
  Receipt Date: 20110304
  Transmission Date: 20110831
  Serious: Yes (Hospitalization, Other)
  Sender: FDA-Public Use
  Company Number: US-PFIZER INC-2010178508

PATIENT
  Sex: Female

DRUGS (2)
  1. CHANTIX [Suspect]
     Indication: SMOKING CESSATION THERAPY
     Dosage: STARTER MONTH PACK
     Dates: start: 20080301, end: 20080401
  2. CHANTIX [Suspect]
     Dosage: STARTER MONTH PACK
     Dates: start: 20091201, end: 20100101

REACTIONS (6)
  - MAJOR DEPRESSION [None]
  - POST-TRAUMATIC STRESS DISORDER [None]
  - HALLUCINATION, VISUAL [None]
  - ANXIETY [None]
  - SUICIDE ATTEMPT [None]
  - AMNESIA [None]
